FAERS Safety Report 24622651 (Version 1)
Quarter: 2024Q4

REPORT INFORMATION
  Report Type: Spontaneous
  Country: US (occurrence: US)
  Receive Date: 20241115
  Receipt Date: 20241115
  Transmission Date: 20250114
  Serious: No
  Sender: ROCHE
  Company Number: US-ROCHE-10000125310

PATIENT
  Age: 34 Year
  Sex: Female

DRUGS (5)
  1. RITUXIMAB [Interacting]
     Active Substance: RITUXIMAB
     Indication: Multiple sclerosis
     Route: 065
  2. PNEUMOVAX 23 [Interacting]
     Active Substance: PNEUMOCOCCAL VACCINE, POLYVALENT 23
     Indication: Multiple sclerosis
     Route: 065
  3. PRIVIGEN [Concomitant]
     Active Substance: HUMAN IMMUNOGLOBULIN G
  4. PREDNISONE [Concomitant]
     Active Substance: PREDNISONE
  5. GAMUNEX [Concomitant]
     Active Substance: HUMAN IMMUNOGLOBULIN G

REACTIONS (4)
  - Upper respiratory tract infection [Unknown]
  - Vaccination failure [Unknown]
  - Vaccine interaction [Unknown]
  - Hypogammaglobulinaemia [Unknown]
